FAERS Safety Report 9924022 (Version 5)
Quarter: 2015Q3

REPORT INFORMATION
  Report Type: Report from Study
  Country: DE (occurrence: DE)
  Receive Date: 20140225
  Receipt Date: 20150921
  Transmission Date: 20151125
  Serious: Yes (Hospitalization, Disabling, Other)
  Sender: FDA-Public Use
  Company Number: DE-BRISTOL-MYERS SQUIBB COMPANY-18819391

PATIENT
  Age: 70 Year
  Sex: Male

DRUGS (8)
  1. BLINDED IPILIMUMAB [Suspect]
     Active Substance: IPILIMUMAB
     Indication: NON-SMALL CELL LUNG CANCER
     Dosage: DOSE:10MG/KG; 152 ML
     Route: 042
     Dates: start: 20121005, end: 20130206
  2. BLINDED CARBOPLATIN [Suspect]
     Active Substance: CARBOPLATIN
     Indication: NON-SMALL CELL LUNG CANCER
     Dosage: DOSE: AUC 6
     Route: 042
     Dates: start: 20120823, end: 20121207
  3. BLINDED IPILIMUMAB [Suspect]
     Active Substance: IPILIMUMAB
     Indication: NON-SMALL CELL LUNG CANCER
     Dosage: DOSE:175MG/M2; 338 MG
     Route: 042
     Dates: start: 20120823, end: 20121207
  4. PLACEBO [Suspect]
     Active Substance: UNSPECIFIED INGREDIENT
     Indication: NON-SMALL CELL LUNG CANCER
     Dosage: DOSE: AUC 6
     Route: 042
     Dates: start: 20120823, end: 20121207
  5. PLACEBO [Suspect]
     Active Substance: UNSPECIFIED INGREDIENT
     Indication: NON-SMALL CELL LUNG CANCER
     Dosage: DOSE:10MG/KG; 152 ML
     Route: 042
     Dates: start: 20121005, end: 20130206
  6. BLINDED IPILIMUMAB [Suspect]
     Active Substance: IPILIMUMAB
     Indication: NON-SMALL CELL LUNG CANCER
     Dosage: DOSE: AUC 6
     Route: 042
     Dates: start: 20120823, end: 20121207
  7. BLINDED PACLITAXEL [Suspect]
     Active Substance: PACLITAXEL
     Indication: NON-SMALL CELL LUNG CANCER
     Dosage: DOSE:175MG/M2; 338 MG
     Route: 042
     Dates: start: 20120823, end: 20121207
  8. PLACEBO [Suspect]
     Active Substance: UNSPECIFIED INGREDIENT
     Indication: NON-SMALL CELL LUNG CANCER
     Dosage: DOSE:175MG/M2; 338 MG
     Route: 042
     Dates: start: 20120823, end: 20121207

REACTIONS (2)
  - Chronic obstructive pulmonary disease [Recovered/Resolved]
  - Type 2 diabetes mellitus [Recovered/Resolved with Sequelae]

NARRATIVE: CASE EVENT DATE: 20130419
